FAERS Safety Report 8467409-0 (Version None)
Quarter: 2012Q2

REPORT INFORMATION
  Report Type: 
  Country: None (occurrence: None)
  Receive Date: 20120626
  Receipt Date: 20120613
  Transmission Date: 20120825
  Serious: No
  Sender: FDA-Public Use
  Company Number: US-ASTRAZENECA-2012SE39551

PATIENT
  Sex: Male

DRUGS (2)
  1. BRILINTA [Suspect]
     Route: 048
     Dates: start: 20120201
  2. UNSPECIFIED [Concomitant]

REACTIONS (4)
  - DYSPNOEA [None]
  - WEIGHT DECREASED [None]
  - RED BLOOD CELL COUNT DECREASED [None]
  - DECREASED APPETITE [None]
